FAERS Safety Report 7866948-0 (Version None)
Quarter: 2011Q4

REPORT INFORMATION
  Report Type: 
  Country: None (occurrence: None)
  Receive Date: 20111026
  Receipt Date: 20111014
  Transmission Date: 20120403
  Serious: Yes (Hospitalization)
  Sender: FDA-Public Use
  Company Number: 2011AP001440

PATIENT
  Age: 90 Year
  Sex: Female

DRUGS (11)
  1. CLARITHROMYCIN [Suspect]
     Indication: PULMONARY EMBOLISM
     Dosage: 500 MG;PO
     Route: 048
     Dates: start: 20110322, end: 20110328
  2. ALLOPURINOL [Concomitant]
  3. FUROSEMIDE [Concomitant]
  4. WARFARIN SODIUM [Suspect]
     Indication: LOWER RESPIRATORY TRACT INFECTION
  5. OMEPRAZOLE [Concomitant]
  6. CALCIUM PHOSPHATE [Concomitant]
  7. ACETAMINOPHEN W/ CODEINE [Concomitant]
  8. ACETAMINOPHEN [Concomitant]
  9. FOLIC ACID [Concomitant]
  10. CALCIUM CARBONATE [Concomitant]
  11. CHOLECALCIFEROL (COLECALCIFEROL) [Concomitant]

REACTIONS (3)
  - EPISTAXIS [None]
  - DRUG INTERACTION [None]
  - INTERNATIONAL NORMALISED RATIO INCREASED [None]
